FAERS Safety Report 6767821-1 (Version None)
Quarter: 2010Q2

REPORT INFORMATION
  Report Type: 
  Country: None (occurrence: None)
  Receive Date: 20100614
  Receipt Date: 20100416
  Transmission Date: 20101027
  Serious: No
  Sender: FDA-Public Use
  Company Number: A0855829A

PATIENT
  Sex: Female

DRUGS (1)
  1. NICORETTE MINIS MINT [Suspect]

REACTIONS (2)
  - DRUG ADMINISTRATION ERROR [None]
  - GLOSSODYNIA [None]
